FAERS Safety Report 7346074-X (Version None)
Quarter: 2011Q1

REPORT INFORMATION
  Report Type: 
  Country: None (occurrence: None)
  Receive Date: 20110301
  Receipt Date: 20110217
  Transmission Date: 20110831
  Serious: Yes (Other)
  Sender: FDA-Public Use
  Company Number: WAES 1003USA04676

PATIENT
  Age: 36 Month
  Sex: Male

DRUGS (2)
  1. INTAL [Concomitant]
  2. SINGULAIR [Suspect]
     Indication: ASTHMA
     Dosage: 4 MG/DAILY
     Route: 048
     Dates: start: 20080703, end: 20090402

REACTIONS (2)
  - ADVERSE EVENT [None]
  - PALPITATIONS [None]
